FAERS Safety Report 10351886 (Version 1)
Quarter: 2014Q3

REPORT INFORMATION
  Report Type: Spontaneous
  Country: US (occurrence: US)
  Receive Date: 20140730
  Receipt Date: 20140730
  Transmission Date: 20150326
  Serious: No
  Sender: FDA-Public Use
  Company Number: US-ABBVIE-14P-163-1239493-00

PATIENT
  Sex: Female
  Weight: 80.36 kg

DRUGS (5)
  1. DYMISTA [Concomitant]
     Active Substance: AZELASTINE HYDROCHLORIDE\FLUTICASONE PROPIONATE
     Indication: PRODUCT USED FOR UNKNOWN INDICATION
     Dosage: UNKNOWN
  2. SYNTHROID [Suspect]
     Active Substance: LEVOTHYROXINE SODIUM
  3. IODINE [Concomitant]
     Active Substance: IODINE
     Indication: PRODUCT USED FOR UNKNOWN INDICATION
  4. SYNTHROID [Suspect]
     Active Substance: LEVOTHYROXINE SODIUM
     Indication: HYPOTHYROIDISM
     Dates: start: 2000
  5. ALLEGRA [Concomitant]
     Active Substance: FEXOFENADINE HYDROCHLORIDE
     Indication: PRODUCT USED FOR UNKNOWN INDICATION

REACTIONS (11)
  - Feeling abnormal [Unknown]
  - Product odour abnormal [Unknown]
  - Drug ineffective [Unknown]
  - Dysphonia [Unknown]
  - Lethargy [Unknown]
  - Swelling face [Unknown]
  - Hypersomnia [Unknown]
  - Peripheral swelling [Unknown]
  - Malaise [Unknown]
  - Joint swelling [Unknown]
  - Speech disorder [Unknown]
